FAERS Safety Report 11075610 (Version 1)
Quarter: 2015Q2

REPORT INFORMATION
  Report Type: Spontaneous
  Country: CN (occurrence: CN)
  Receive Date: 20150429
  Receipt Date: 20150429
  Transmission Date: 20150821
  Serious: Yes (Other)
  Sender: FDA-Public Use
  Company Number: CN-BAYER-2015-159843

PATIENT
  Age: 88 Year
  Sex: Male
  Weight: 50 kg

DRUGS (1)
  1. AVELOX [Suspect]
     Active Substance: MOXIFLOXACIN HYDROCHLORIDE
     Indication: PNEUMONIA
     Dosage: 0.4 G, QD
     Route: 048
     Dates: start: 20141029, end: 20141109

REACTIONS (2)
  - Mental disorder [Recovered/Resolved]
  - Delirium [Recovered/Resolved]

NARRATIVE: CASE EVENT DATE: 20141109
